FAERS Safety Report 24285434 (Version 1)
Quarter: 2024Q3

REPORT INFORMATION
  Report Type: Spontaneous
  Country: US (occurrence: None)
  Receive Date: 20240902
  Receipt Date: 20240902
  Transmission Date: 20241017
  Serious: Yes (Hospitalization)
  Sender: Public
  Company Number: None

PATIENT
  Sex: Female

DRUGS (1)
  1. HUMIRA [Suspect]
     Active Substance: ADALIMUMAB
     Indication: Hidradenitis
     Dosage: 80MG EVERY 14 DAYS UNDER SKIN
     Route: 058
     Dates: start: 202212

REACTIONS (2)
  - Diabetes mellitus [None]
  - Therapy interrupted [None]
